FAERS Safety Report 5898252-4 (Version None)
Quarter: 2008Q3

REPORT INFORMATION
  Report Type: 
  Country: None (occurrence: None)
  Receive Date: 20080925
  Receipt Date: 20070803
  Transmission Date: 20090109
  Serious: No
  Sender: FDA-Public Use
  Company Number: A0668149A

PATIENT
  Age: 43 Year
  Sex: Male

DRUGS (6)
  1. WELLBUTRIN XL [Suspect]
     Indication: DEPRESSION
     Dosage: 150MG PER DAY
     Route: 048
     Dates: start: 20070731
  2. BENAZEPRIL HYDROCHLORIDE [Concomitant]
  3. ZETIA [Concomitant]
  4. ZYRTEC [Concomitant]
  5. NEXIUM [Concomitant]
  6. VITAMIN D [Concomitant]

REACTIONS (1)
  - STOMACH DISCOMFORT [None]
